FAERS Safety Report 17976560 (Version 3)
Quarter: 2020Q3

REPORT INFORMATION
  Report Type: Report from Study
  Country: JP (occurrence: JP)
  Receive Date: 20200703
  Receipt Date: 20200717
  Transmission Date: 20201103
  Serious: Yes (Death, Hospitalization, Other)
  Sender: FDA-Public Use
  Company Number: JP-CELLTRION INC.-2019JP026460

PATIENT

DRUGS (23)
  1. S?1TAIHO [Suspect]
     Active Substance: GIMERACIL\OTERACIL\TEGAFUR
     Indication: HER2 POSITIVE GASTRIC CANCER
     Dosage: 80 MILLIGRAM, QD
     Route: 048
     Dates: start: 20191107, end: 20191120
  2. FENTOS [Concomitant]
     Active Substance: FENTANYL
     Indication: CANCER PAIN
  3. CT?P6 [Suspect]
     Active Substance: INVESTIGATIONAL BIOSIMILARS
     Indication: HER2 POSITIVE GASTRIC CANCER
     Dosage: 302.4 MILLIGRAM, EVERY INFUSION DAY  (8 MILLIGRAM/KILOGRAM); 1ST COURSE
     Route: 041
     Dates: start: 20191107, end: 20191107
  4. CISPLATIN. [Suspect]
     Active Substance: CISPLATIN
     Dosage: 3RD COURSE
     Dates: start: 20191220, end: 20191220
  5. KALIMATE [Concomitant]
     Active Substance: CALCIUM POLYSTYRENE SULFONATE
     Indication: CONSTIPATION
  6. S?1TAIHO [Suspect]
     Active Substance: GIMERACIL\OTERACIL\TEGAFUR
     Dosage: 80 MILLIGRAM, QD
     Route: 048
     Dates: start: 20191220, end: 20200102
  7. CAPECITABINE. [Suspect]
     Active Substance: CAPECITABINE
     Indication: HER2 POSITIVE GASTRIC CANCER
     Dosage: 1ST COURSE
     Dates: start: 20191107, end: 20191107
  8. MAGMITT [Concomitant]
     Active Substance: MAGNESIUM OXIDE
     Indication: CONSTIPATION
  9. SYMPROIC [Concomitant]
     Active Substance: NALDEMEDINE
     Indication: CONSTIPATION
  10. CT?P6 [Suspect]
     Active Substance: INVESTIGATIONAL BIOSIMILARS
     Dosage: 213.3 MILLIGRAM, EVERY INFUSION DAY ; 2ND COURSE
     Route: 041
     Dates: start: 20191128, end: 20191128
  11. S?1TAIHO [Suspect]
     Active Substance: GIMERACIL\OTERACIL\TEGAFUR
     Dosage: 80 MILLIGRAM, QD
     Route: 048
     Dates: start: 20191128, end: 20191211
  12. CISPLATIN. [Suspect]
     Active Substance: CISPLATIN
     Indication: HER2 POSITIVE GASTRIC CANCER
     Dosage: 1ST COURSE
     Dates: start: 20191107, end: 20191107
  13. TAKECAB [Concomitant]
     Active Substance: VONOPRAZAN FUMARATE
     Indication: GASTROOESOPHAGEAL REFLUX DISEASE
     Dosage: STOP DATE: 22 NOV 2019
  14. CT?P6 [Suspect]
     Active Substance: INVESTIGATIONAL BIOSIMILARS
     Dosage: 213.3 MILLIGRAM, EVERY INFUSION DAY; 3RD COURSE
     Route: 041
     Dates: start: 20191220, end: 20191220
  15. OXALIPLATIN. [Suspect]
     Active Substance: OXALIPLATIN
     Indication: HER2 POSITIVE GASTRIC CANCER
     Dosage: 122.4 MILLIGRAM, QD
     Route: 041
     Dates: start: 20191107, end: 20191107
  16. CAPECITABINE. [Suspect]
     Active Substance: CAPECITABINE
     Dosage: 2ND COURSE
     Dates: start: 20191128, end: 20191128
  17. BETAMETHASONE. [Concomitant]
     Active Substance: BETAMETHASONE
     Indication: MALAISE
     Dosage: UNK
     Dates: start: 20191108
  18. GOOFICE [Concomitant]
     Active Substance: ELOBIXIBAT
     Indication: CONSTIPATION
  19. OXALIPLATIN. [Suspect]
     Active Substance: OXALIPLATIN
     Dosage: 119.1 MILLIGRAM, QD
     Route: 041
     Dates: start: 20191128, end: 20191128
  20. OXALIPLATIN. [Suspect]
     Active Substance: OXALIPLATIN
     Dosage: 119.2 MILLIGRAM, QD
     Route: 041
     Dates: start: 20191220, end: 20191220
  21. CISPLATIN. [Suspect]
     Active Substance: CISPLATIN
     Dosage: 2ND COURSE
     Dates: start: 20191128, end: 20191128
  22. CAPECITABINE. [Suspect]
     Active Substance: CAPECITABINE
     Dosage: 3RD COURSE
     Dates: start: 20191220, end: 20191220
  23. NEXIUM I.V. [Concomitant]
     Active Substance: ESOMEPRAZOLE SODIUM
     Indication: GASTROOESOPHAGEAL REFLUX DISEASE
     Dosage: UNK
     Dates: start: 20191123

REACTIONS (6)
  - HER2 positive gastric cancer [Fatal]
  - Neutropenia [Recovered/Resolved]
  - Pneumonia [Recovered/Resolved]
  - Infusion related reaction [Recovered/Resolved]
  - Anaemia [Recovering/Resolving]
  - Underdose [Unknown]

NARRATIVE: CASE EVENT DATE: 20191107
